FAERS Safety Report 23076751 (Version 1)
Quarter: 2023Q4

REPORT INFORMATION
  Report Type: Spontaneous
  Country: US (occurrence: US)
  Receive Date: 20231017
  Receipt Date: 20231017
  Transmission Date: 20240110
  Serious: Yes (Death, Other)
  Sender: FDA-Public Use
  Company Number: US-NAPPMUNDI-USA-2003-0009207

PATIENT
  Age: 18 Year
  Sex: Male

DRUGS (1)
  1. OXYCONTIN [Suspect]
     Active Substance: OXYCODONE HYDROCHLORIDE
     Indication: Product used for unknown indication
     Dosage: 160 MG, SEE TEXT
     Route: 045

REACTIONS (4)
  - Accidental overdose [Fatal]
  - Drug abuse [Fatal]
  - Pallor [Unknown]
  - Fatigue [Unknown]

NARRATIVE: CASE EVENT DATE: 20030502
